FAERS Safety Report 15897149 (Version 1)
Quarter: 2019Q1

REPORT INFORMATION
  Report Type: Spontaneous
  Country: US (occurrence: US)
  Receive Date: 20190131
  Receipt Date: 20190131
  Transmission Date: 20190417
  Serious: No
  Sender: FDA-Public Use
  Company Number: US-GLAXOSMITHKLINE-US2019012418

PATIENT
  Age: 71 Year
  Sex: Female

DRUGS (1)
  1. ABREVA [Suspect]
     Active Substance: DOCOSANOL
     Indication: ORAL HERPES
     Dosage: APLLIED MORE THAN 8 TIMES

REACTIONS (4)
  - Application site haemorrhage [Unknown]
  - Application site pain [Unknown]
  - Inappropriate schedule of product administration [Unknown]
  - Application site vesicles [Unknown]
